FAERS Safety Report 25976856 (Version 1)
Quarter: 2025Q4

REPORT INFORMATION
  Report Type: Spontaneous
  Country: US (occurrence: US)
  Receive Date: 20251029
  Receipt Date: 20251029
  Transmission Date: 20260118
  Serious: No
  Sender: ETON PHARMACEUTICALS, INC
  Company Number: US-IPSEN Group, Research and Development-2024-23272

PATIENT

DRUGS (1)
  1. INCRELEX [Suspect]
     Active Substance: MECASERMIN
     Indication: Product used for unknown indication
     Route: 065

REACTIONS (2)
  - Product temperature excursion issue [Unknown]
  - Intercepted product administration error [Unknown]
